FAERS Safety Report 18189460 (Version 2)
Quarter: 2021Q4

REPORT INFORMATION
  Report Type: Spontaneous
  Country: US (occurrence: US)
  Receive Date: 20200824
  Receipt Date: 20211004
  Transmission Date: 20220303
  Serious: Yes (Death, Disabling, Other)
  Sender: FDA-Public Use
  Company Number: US-PURDUE-USA-2020-0162310

PATIENT
  Sex: Male

DRUGS (3)
  1. OXYCONTIN [Suspect]
     Active Substance: OXYCODONE HYDROCHLORIDE
     Indication: Limb injury
     Dosage: UNK
     Route: 048
  2. DHC PLUS [Suspect]
     Active Substance: ACETAMINOPHEN\CAFFEINE\DIHYDROCODEINE BITARTRATE
     Indication: Limb injury
     Dosage: UNK
     Route: 065
  3. RYZOLT [Suspect]
     Active Substance: TRAMADOL HYDROCHLORIDE
     Indication: Limb injury
     Dosage: UNK
     Route: 065

REACTIONS (6)
  - Overdose [Fatal]
  - Drug dependence [Unknown]
  - Disability [Unknown]
  - Neurodegenerative disorder [Unknown]
  - Emotional distress [Unknown]
  - Inflammation [Unknown]

NARRATIVE: CASE EVENT DATE: 20150101
